FAERS Safety Report 12488214 (Version 2)
Quarter: 2016Q4

REPORT INFORMATION
  Report Type: Spontaneous
  Country: US (occurrence: US)
  Receive Date: 20160622
  Receipt Date: 20161017
  Transmission Date: 20170207
  Serious: Yes (Hospitalization, Other)
  Sender: FDA-Public Use
  Company Number: US-ELI_LILLY_AND_COMPANY-US201606006877

PATIENT
  Age: 42 Year
  Sex: Male
  Weight: 117 kg

DRUGS (2)
  1. AXIRON [Suspect]
     Active Substance: TESTOSTERONE
     Indication: ANDROGEN REPLACEMENT THERAPY
     Dosage: 2 DF, QD
     Route: 065
     Dates: start: 201308, end: 201311
  2. ANDROGEL [Suspect]
     Active Substance: TESTOSTERONE
     Indication: ANDROGEN REPLACEMENT THERAPY
     Dosage: 2 DF, QD
     Route: 065
     Dates: start: 201312, end: 201405

REACTIONS (3)
  - Thrombosis [Not Recovered/Not Resolved]
  - Deep vein thrombosis [Not Recovered/Not Resolved]
  - Cerebrovascular accident [Not Recovered/Not Resolved]

NARRATIVE: CASE EVENT DATE: 201406
